FAERS Safety Report 10426569 (Version 1)
Quarter: 2014Q3

REPORT INFORMATION
  Report Type: Spontaneous
  Country: US (occurrence: None)
  Receive Date: 20140725
  Receipt Date: 20140725
  Transmission Date: 20150326
  Serious: No
  Sender: FDA-Public Use
  Company Number: AP356-00779-SPO-US

PATIENT
  Age: 53 Year
  Sex: Female

DRUGS (3)
  1. EDARBYCLOR (AZILSARTAN MEDOXOMIL AND CHLORTHALIDONE) (ANTIHYPERTENSIVES AND DIURETICS IN COMBINATIO) [Concomitant]
  2. SYNTHROID [Concomitant]
     Active Substance: LEVOTHYROXINE SODIUM
  3. BELVIQ [Suspect]
     Active Substance: LORCASERIN HYDROCHLORIDE
     Indication: WEIGHT DECREASED
     Route: 048
     Dates: start: 20140506

REACTIONS (1)
  - Constipation [None]

NARRATIVE: CASE EVENT DATE: 20140506
